FAERS Safety Report 7055534-0 (Version None)
Quarter: 2010Q4

REPORT INFORMATION
  Report Type: 
  Country: None (occurrence: None)
  Receive Date: 20101021
  Receipt Date: 20101012
  Transmission Date: 20110411
  Serious: Yes (Hospitalization)
  Sender: FDA-Public Use
  Company Number: US-BAYER-201042100GPV

PATIENT
  Age: 50 Year
  Sex: Male

DRUGS (8)
  1. TRIMETHOPRIM + SULFAMETHOXAZOLE [Suspect]
     Indication: NOCARDIOSIS
     Dosage: HAD HAD 6 MONTHS TREATMENT UPON ONSET OF EVENT, COMPLETED 1 YEAR OF TOTAL TREATMENT
  2. CIPROFLOXACIN [Suspect]
     Indication: CELLULITIS
  3. PREDNISONE [Suspect]
     Indication: IMMUNOSUPPRESSION
  4. DOXYCYCLINE [Suspect]
     Indication: PEAU D'ORANGE
  5. MYCOPHENOLATE MOFETIL [Suspect]
     Indication: IMMUNOSUPPRESSION
     Dosage: TOTAL DAILY DOSE: 3 G
  6. TACROLIMUS [Suspect]
     Indication: IMMUNOSUPPRESSION
     Dosage: TOTAL DAILY DOSE: 4 G
  7. VANCOMYCIN [Concomitant]
  8. PIPERACILLIN AND TAZOBACTAM [Concomitant]

REACTIONS (1)
  - ABSCESS FUNGAL [None]
